FAERS Safety Report 10003849 (Version 2)
Quarter: 2014Q1

REPORT INFORMATION
  Report Type: Spontaneous
  Country: US (occurrence: US)
  Receive Date: 20140312
  Receipt Date: 20140312
  Transmission Date: 20141002
  Serious: Yes (Other)
  Sender: FDA-Public Use
  Company Number: US-INCYTE CORPORATION-2013IN003043

PATIENT
  Age: 68 Year
  Sex: Male

DRUGS (10)
  1. JAKAFI [Suspect]
     Indication: MYELOFIBROSIS
     Dosage: NOT SPECIFIED
     Route: 048
     Dates: start: 201202, end: 201202
  2. JAKAFI [Suspect]
     Dosage: 10 MG, BID
     Route: 048
     Dates: start: 201310
  3. CYCLOPHOSPHAMIDE [Concomitant]
  4. CITALOPRAM [Concomitant]
  5. FUROSEMIDE [Concomitant]
  6. ALLOPURINOL [Concomitant]
  7. METOPROLOL [Concomitant]
  8. LORAZEPAM [Concomitant]
  9. TERAZOSIN [Concomitant]
  10. BACLOFEN [Concomitant]

REACTIONS (3)
  - Transfusion [Unknown]
  - Vision blurred [Unknown]
  - Intraocular pressure increased [Unknown]
